FAERS Safety Report 20812065 (Version 2)
Quarter: 2022Q2

REPORT INFORMATION
  Report Type: Report from Study
  Country: CA (occurrence: CA)
  Receive Date: 20220511
  Receipt Date: 20220628
  Transmission Date: 20220721
  Serious: Yes (Other)
  Sender: FDA-Public Use
  Company Number: CA-JNJFOC-20220508917

PATIENT
  Age: 35 Year
  Sex: Male
  Weight: 92 kg

DRUGS (1)
  1. REMICADE [Suspect]
     Active Substance: INFLIXIMAB
     Indication: Colitis ulcerative
     Dosage: LAST INFUSION RECEIVED ON 23-MAR-2022
     Route: 042

REACTIONS (3)
  - Colitis ulcerative [Recovering/Resolving]
  - COVID-19 [Unknown]
  - Food poisoning [Unknown]

NARRATIVE: CASE EVENT DATE: 20220323
